FAERS Safety Report 7938586-2 (Version None)
Quarter: 2011Q4

REPORT INFORMATION
  Report Type: 
  Country: None (occurrence: None)
  Receive Date: 20111123
  Receipt Date: 20111114
  Transmission Date: 20120403
  Serious: Yes (Hospitalization, Other)
  Sender: FDA-Public Use
  Company Number: US-ASTRAZENECA-2011SE69474

PATIENT
  Age: 62 Year
  Sex: Female
  Weight: 113.4 kg

DRUGS (15)
  1. METOPROLOL TARTRATE [Concomitant]
  2. COUMADIN [Concomitant]
  3. KLOR-CON [Concomitant]
  4. ALBUTEROL [Concomitant]
  5. LANTUS [Concomitant]
  6. METFORMIN [Concomitant]
  7. SIMVASTATIN [Concomitant]
  8. LISINOPRIL [Concomitant]
  9. PROZAC [Concomitant]
  10. REGULAR INSULIN [Concomitant]
  11. ASPIRIN [Concomitant]
  12. FERROUS SULFATE TAB [Concomitant]
  13. LASIX [Concomitant]
  14. SYMBICORT [Suspect]
     Indication: ASTHMA
     Dosage: 160/4.5 MCG TWO PUFFS TWO TIMES A DAY
     Route: 055
     Dates: start: 20110801
  15. PROTONIX [Concomitant]

REACTIONS (6)
  - CARDIAC FAILURE [None]
  - MYOCARDIAL INFARCTION [None]
  - PAIN IN EXTREMITY [None]
  - FLUID RETENTION [None]
  - ASTHMA [None]
  - MEMORY IMPAIRMENT [None]
